FAERS Safety Report 9198974 (Version 3)
Quarter: 2013Q2

REPORT INFORMATION
  Report Type: Spontaneous
  Country: GB (occurrence: GB)
  Receive Date: 20130329
  Receipt Date: 20130425
  Transmission Date: 20140414
  Serious: Yes (Hospitalization, Other)
  Sender: FDA-Public Use
  Company Number: GB-009507513-1303GBR013556

PATIENT
  Age: 70 Year
  Sex: Male

DRUGS (12)
  1. MIRTAZAPINE [Suspect]
     Indication: BIPOLAR DISORDER
     Dosage: UNK UNK, QD
     Dates: start: 2010, end: 2012
  2. MIRTAZAPINE [Suspect]
     Dosage: 30 MG, QD
     Dates: start: 20121231
  3. ABILIFY [Suspect]
     Indication: BIPOLAR DISORDER
     Dosage: 5 MG, QD
     Route: 048
     Dates: start: 201004, end: 201104
  4. ABILIFY [Suspect]
     Dosage: 5 MG, QD
     Route: 048
     Dates: start: 20121129
  5. OLANZAPINE [Suspect]
     Indication: HYPOMANIA
     Dosage: 7.5 MG, QD
     Route: 048
     Dates: start: 20120810, end: 20121101
  6. ATORVASTATIN [Concomitant]
     Dosage: 20 MG, QD
  7. BISOPROLOL [Concomitant]
     Dosage: 1.25 MG, QD
  8. FOLIC ACID [Concomitant]
     Dosage: 5 MG, QD
  9. LANSOPRAZOLE [Concomitant]
     Dosage: 30 MG, QD
  10. LEVOTHYROXINE SODIUM [Concomitant]
     Dosage: 1.25 MICROGRAM, QD
  11. RAMIPRIL [Concomitant]
     Dosage: 2.5 MG, QD
  12. WARFARIN [Concomitant]
     Dosage: 5 MG, QD
     Dates: start: 201301

REACTIONS (2)
  - Embolism venous [Unknown]
  - Drug ineffective [Unknown]
